FAERS Safety Report 5752388-7 (Version None)
Quarter: 2008Q2

REPORT INFORMATION
  Report Type: 
  Country: None (occurrence: None)
  Receive Date: 20080529
  Receipt Date: 20080523
  Transmission Date: 20081010
  Serious: Yes (Death, Hospitalization)
  Sender: FDA-Public Use
  Company Number: A0729422A

PATIENT
  Age: 50 Year
  Sex: Female

DRUGS (2)
  1. AVANDIA [Suspect]
     Dosage: 4MG TWICE PER DAY
     Route: 048
     Dates: start: 20030101
  2. MULTIPLE MEDICATIONS [Concomitant]

REACTIONS (2)
  - DYSPNOEA [None]
  - HEPATIC FAILURE [None]
